FAERS Safety Report 24154390 (Version 2)
Quarter: 2024Q3

REPORT INFORMATION
  Report Type: Report from Study
  Country: ZA (occurrence: ZA)
  Receive Date: 20240731
  Receipt Date: 20240823
  Transmission Date: 20241017
  Serious: Yes (Death)
  Sender: REGENERON
  Company Number: ZA-BAYER-2024A109324

PATIENT
  Sex: Male

DRUGS (2)
  1. EYLEA [Suspect]
     Active Substance: AFLIBERCEPT
     Indication: Macular oedema
     Dosage: 2 MG, LEFT EYE, SOLUTION FOR INJECTION, 40 MG/ML
     Dates: start: 20210630, end: 20240408
  2. AVASTIN [Concomitant]
     Active Substance: BEVACIZUMAB
     Indication: Product used for unknown indication
     Dosage: UNK

REACTIONS (2)
  - Lung disorder [Fatal]
  - Illness [Fatal]
